FAERS Safety Report 4747775-X (Version None)
Quarter: 2005Q3

REPORT INFORMATION
  Report Type: 
  Country: None (occurrence: None)
  Receive Date: 20050817
  Receipt Date: 20050817
  Transmission Date: 20060218
  Serious: Yes (Hospitalization)
  Sender: FDA-Public Use
  Company Number: None

PATIENT
  Age: 71 Year
  Sex: Male
  Weight: 71 kg

DRUGS (1)
  1. FUROSEMIDE [Suspect]
     Indication: CARDIAC FAILURE CONGESTIVE
     Dosage: 80 MG DAILY ORAL
     Route: 048
     Dates: start: 20050502, end: 20050507

REACTIONS (3)
  - DEHYDRATION [None]
  - POLYURIA [None]
  - RENAL FAILURE ACUTE [None]
